FAERS Safety Report 4455122-6 (Version None)
Quarter: 2004Q3

REPORT INFORMATION
  Report Type: 
  Country: None (occurrence: None)
  Receive Date: 20040917
  Receipt Date: 20040903
  Transmission Date: 20050211
  Serious: Yes (Disabling)
  Sender: FDA-Public Use
  Company Number: 2004-00465

PATIENT
  Age: 43 Year
  Sex: Male

DRUGS (1)
  1. VELCADE [Suspect]
     Indication: MULTIPLE MYELOMA
     Dosage: IV BOLUS
     Route: 040
     Dates: start: 20040501, end: 20040801

REACTIONS (3)
  - BLINDNESS [None]
  - OPTIC ATROPHY [None]
  - OPTIC NEUROPATHY [None]
